FAERS Safety Report 7807354-4 (Version None)
Quarter: 2011Q4

REPORT INFORMATION
  Report Type: 
  Country: None (occurrence: None)
  Receive Date: 20111011
  Receipt Date: 20110929
  Transmission Date: 20120403
  Serious: Yes (Hospitalization)
  Sender: FDA-Public Use
  Company Number: NL-NAPPMUNDI-DEU-2011-0007880

PATIENT
  Age: 70 Year
  Sex: Female

DRUGS (2)
  1. MORPHINE SULFATE [Suspect]
     Indication: BACK PAIN
     Dosage: 10 MG, UNK
  2. CORTICOSTEROIDS [Concomitant]

REACTIONS (1)
  - ACUTE GENERALISED EXANTHEMATOUS PUSTULOSIS [None]
